FAERS Safety Report 9618110 (Version 1)
Quarter: 2013Q4

REPORT INFORMATION
  Report Type: Other
  Country: GB (occurrence: GB)
  Receive Date: 20131013
  Receipt Date: 20131013
  Transmission Date: 20140711
  Serious: Yes (Other)
  Sender: FDA-Public Use
  Company Number: GB-TAKEDA-2013TJP001628

PATIENT
  Sex: 0

DRUGS (1)
  1. LANSOPRAZOLE [Suspect]
     Indication: COUGH
     Dosage: 30 MG, UNK
     Route: 048
     Dates: start: 201206, end: 201306

REACTIONS (3)
  - Somnolence [Recovered/Resolved]
  - Activities of daily living impaired [Recovered/Resolved]
  - Off label use [Recovered/Resolved]
